FAERS Safety Report 25701755 (Version 1)
Quarter: 2025Q3

REPORT INFORMATION
  Report Type: Report from Study
  Country: JP (occurrence: JP)
  Receive Date: 20250819
  Receipt Date: 20250819
  Transmission Date: 20251021
  Serious: Yes (Other)
  Sender: ALNYLAM PHARMACEUTICALS
  Company Number: JP-ALNYLAM PHARMACEUTICALS, INC.-ALN-2025-005003

PATIENT

DRUGS (7)
  1. AMVUTTRA [Suspect]
     Active Substance: VUTRISIRAN
     Indication: Hereditary neuropathic amyloidosis
     Route: 058
     Dates: start: 20230602
  2. Chocola a [Concomitant]
     Indication: Vitamin supplementation
     Route: 048
     Dates: start: 20230602
  3. BISOPROLOL FUMARATE [Concomitant]
     Active Substance: BISOPROLOL FUMARATE
     Indication: Hereditary neuropathic amyloidosis
     Route: 048
     Dates: end: 20240510
  4. EPLERENONE [Concomitant]
     Active Substance: EPLERENONE
     Indication: Hereditary neuropathic amyloidosis
     Route: 048
  5. Azosemide dsep [Concomitant]
     Indication: Hereditary neuropathic amyloidosis
     Route: 048
  6. LOSARTAN POTASSIUM [Concomitant]
     Active Substance: LOSARTAN POTASSIUM
     Indication: Hereditary neuropathic amyloidosis
     Route: 048
  7. DAPAGLIFLOZIN [Concomitant]
     Active Substance: DAPAGLIFLOZIN
     Indication: Hereditary neuropathic amyloidosis
     Route: 048

REACTIONS (1)
  - Atrioventricular block complete [Unknown]
